FAERS Safety Report 10032783 (Version 15)
Quarter: 2018Q4

REPORT INFORMATION
  Report Type: Spontaneous
  Country: US (occurrence: US)
  Receive Date: 20140324
  Receipt Date: 20181114
  Transmission Date: 20190204
  Serious: Yes (Hospitalization, Other)
  Sender: FDA-Public Use
  Company Number: US-DSJP-DSU-2014-101358

PATIENT

DRUGS (4)
  1. PRILOSEC [Concomitant]
     Active Substance: OMEPRAZOLE MAGNESIUM
     Dosage: 20 MG, BID
  2. BENICAR HCT [Suspect]
     Active Substance: HYDROCHLOROTHIAZIDE\OLMESARTAN MEDOXOMIL
     Indication: HYPERTENSION
     Dosage: 40 MG, UNK
     Dates: start: 20100618, end: 20130712
  3. PRILOSEC [Concomitant]
     Active Substance: OMEPRAZOLE MAGNESIUM
     Indication: GASTROOESOPHAGEAL REFLUX DISEASE
     Dosage: 40 MG, QD
     Route: 048
  4. BENICAR [Suspect]
     Active Substance: OLMESARTAN MEDOXOMIL
     Indication: HYPERTENSION
     Dosage: 40 MG, QD
     Route: 048
     Dates: start: 200808

REACTIONS (15)
  - Haemorrhoidal haemorrhage [Recovered/Resolved]
  - Barrett^s oesophagus [Recovering/Resolving]
  - Diverticulum intestinal [Unknown]
  - Intussusception [Unknown]
  - Sprue-like enteropathy [Recovering/Resolving]
  - Syncope [Not Recovered/Not Resolved]
  - Hiatus hernia [Not Recovered/Not Resolved]
  - Rib fracture [Unknown]
  - Pneumonia [Recovering/Resolving]
  - Tropical sprue [Unknown]
  - Gastrooesophageal reflux disease [Recovering/Resolving]
  - Coeliac disease [Not Recovered/Not Resolved]
  - Sepsis [Unknown]
  - Constipation [Recovered/Resolved]
  - Gastric polyps [Unknown]

NARRATIVE: CASE EVENT DATE: 20080608
